FAERS Safety Report 6271799-7 (Version None)
Quarter: 2009Q3

REPORT INFORMATION
  Report Type: 
  Country: None (occurrence: None)
  Receive Date: 20090717
  Receipt Date: 20090707
  Transmission Date: 20100115
  Serious: Yes (Hospitalization, Other)
  Sender: FDA-Public Use
  Company Number: JP-PFIZER INC-2009212986

PATIENT
  Age: 76 Year

DRUGS (9)
  1. ZITHROMAX [Suspect]
     Indication: BRONCHITIS
     Dosage: 500 MG, DAILY
     Route: 048
     Dates: start: 20090331, end: 20090402
  2. OLOPATADINE HYDROCHLORIDE [Suspect]
     Indication: RHINITIS ALLERGIC
     Dosage: FREQUENCY: 2X/DAY,
     Route: 048
     Dates: start: 20090331, end: 20090406
  3. BISOLVON [Concomitant]
     Indication: RHINITIS ALLERGIC
     Dosage: 4 MG, 3X/DAY
     Route: 048
     Dates: start: 20090331, end: 20090406
  4. TAKEPRON [Concomitant]
     Dosage: UNK
     Route: 048
     Dates: start: 20090305
  5. KODESORUVAN [Concomitant]
     Dosage: UNK
     Route: 048
     Dates: start: 20050604
  6. MONTELUKAST SODIUM [Concomitant]
     Dosage: UNK
     Route: 048
     Dates: start: 20051222
  7. BLOPRESS [Concomitant]
     Dosage: UNK
     Route: 048
     Dates: start: 20090205
  8. LASIX [Concomitant]
     Dosage: UNK
     Route: 048
     Dates: start: 20040127
  9. LENDORMIN [Concomitant]
     Dosage: UNK
     Route: 048
     Dates: start: 20090108

REACTIONS (1)
  - HEPATIC FUNCTION ABNORMAL [None]
